FAERS Safety Report 23789256 (Version 1)
Quarter: 2024Q2

REPORT INFORMATION
  Report Type: Spontaneous
  Country: CA (occurrence: CA)
  Receive Date: 20240426
  Receipt Date: 20240426
  Transmission Date: 20240715
  Serious: Yes (Other)
  Sender: FDA-Public Use
  Company Number: CA-TEVA-VS-3189874

PATIENT
  Age: 0 Year

DRUGS (1)
  1. AMOXICILLIN [Suspect]
     Active Substance: AMOXICILLIN
     Indication: Product used for unknown indication
     Dosage: DOSE FORM: GRANULE FOR SUSPENSION
     Route: 065

REACTIONS (5)
  - Dyskinesia [Unknown]
  - Dyspnoea [Unknown]
  - Muscle rigidity [Unknown]
  - Product contamination [Unknown]
  - Depressed level of consciousness [Unknown]
